FAERS Safety Report 8934427 (Version 1)
Quarter: 2012Q4

REPORT INFORMATION
  Report Type: 
  Country: US (occurrence: US)
  Receive Date: 20121129
  Receipt Date: 20121129
  Transmission Date: 20130627
  Serious: No
  Sender: FDA-Public Use
  Company Number: US-PFIZER INC-2012296259

PATIENT
  Age: 10 Year
  Sex: Male

DRUGS (2)
  1. GENOTROPIN [Suspect]
     Indication: GROWTH HORMONE DEFICIENCY
     Dosage: 1.2 mg, daily
     Route: 058
     Dates: start: 2004, end: 201209
  2. PULMICORT [Concomitant]
     Dosage: 180 ug, UNK

REACTIONS (1)
  - Drug ineffective [Unknown]
